FAERS Safety Report 10933237 (Version 6)
Quarter: 2015Q3

REPORT INFORMATION
  Report Type: Report from Study
  Country: AU (occurrence: AU)
  Receive Date: 20150320
  Receipt Date: 20150922
  Transmission Date: 20151125
  Serious: Yes (Hospitalization, Other)
  Sender: FDA-Public Use
  Company Number: AU-ASTRAZENECA-2014SE82688

PATIENT
  Age: 28992 Day
  Sex: Male

DRUGS (2)
  1. COSUDEX [Suspect]
     Active Substance: BICALUTAMIDE
     Indication: PROSTATE CANCER
     Route: 048
     Dates: start: 20140601
  2. ZOLADEX [Suspect]
     Active Substance: GOSERELIN ACETATE
     Indication: PROSTATE CANCER
     Route: 058
     Dates: start: 20140601

REACTIONS (5)
  - Drug resistance [Unknown]
  - Goitre [Not Recovered/Not Resolved]
  - Angina pectoris [Recovered/Resolved]
  - Malignant neoplasm progression [Not Recovered/Not Resolved]
  - Prostatic haemorrhage [Unknown]

NARRATIVE: CASE EVENT DATE: 20140725
